FAERS Safety Report 5152652-9 (Version None)
Quarter: 2006Q4

REPORT INFORMATION
  Report Type: 
  Country: None (occurrence: None)
  Receive Date: 20061109
  Receipt Date: 20061101
  Transmission Date: 20070319
  Serious: Yes (Other)
  Sender: FDA-Public Use
  Company Number: 2006133454

PATIENT
  Sex: Male

DRUGS (1)
  1. LISTERINE (MENTHOL, METHYL SALICYLATE, EUCALYPTOL, THYMOL) [Suspect]
     Dosage: 1 LITER BOTTLE ONCE, ORAL
     Route: 048
     Dates: start: 20061101, end: 20061101

REACTIONS (1)
  - INCORRECT ROUTE OF DRUG ADMINISTRATION [None]
